FAERS Safety Report 8256612-0 (Version None)
Quarter: 2012Q2

REPORT INFORMATION
  Report Type: 
  Country: None (occurrence: None)
  Receive Date: 20120403
  Receipt Date: 20120326
  Transmission Date: 20120825
  Serious: Yes (Other)
  Sender: FDA-Public Use
  Company Number: US-ABBOTT-12P-163-0918765-00

PATIENT
  Sex: Male
  Weight: 72.186 kg

DRUGS (14)
  1. INH [Suspect]
     Indication: MYCOBACTERIUM TUBERCULOSIS COMPLEX TEST POSITIVE
  2. HUMIRA [Suspect]
     Indication: PSORIASIS
     Dates: start: 20100601, end: 20111201
  3. TRAVATAN Z [Concomitant]
     Indication: GLAUCOMA
  4. MULTI-VITAMINS [Concomitant]
     Indication: VITAMIN SUPPLEMENTATION
  5. LIPITOR [Concomitant]
     Dates: start: 20120320
  6. AMLODIPINE [Concomitant]
     Indication: HYPERTENSION
  7. LIPITOR [Concomitant]
     Indication: BLOOD CHOLESTEROL INCREASED
     Dates: start: 20120101
  8. HUMIRA [Suspect]
     Indication: PSORIATIC ARTHROPATHY
  9. DITROPAN [Concomitant]
     Indication: BLADDER SPASM
  10. COSOPT [Concomitant]
     Indication: GLAUCOMA
  11. NSAID'S [Concomitant]
     Indication: PSORIATIC ARTHROPATHY
  12. EYE VITAMINS [Concomitant]
     Indication: RETINITIS PIGMENTOSA
  13. INH [Suspect]
     Indication: TUBERCULIN TEST POSITIVE
     Dates: start: 20111201, end: 20120101
  14. LOVAZA [Concomitant]
     Indication: SUPPLEMENTATION THERAPY

REACTIONS (6)
  - BASAL CELL CARCINOMA [None]
  - TUBERCULIN TEST POSITIVE [None]
  - HEPATIC ENZYME INCREASED [None]
  - SKIN ULCER [None]
  - MYCOBACTERIUM TUBERCULOSIS COMPLEX TEST POSITIVE [None]
  - FATIGUE [None]
